FAERS Safety Report 6679651-X (Version None)
Quarter: 2010Q2

REPORT INFORMATION
  Report Type: 
  Country: None (occurrence: None)
  Receive Date: 20100413
  Receipt Date: 20100412
  Transmission Date: 20101027
  Serious: Yes (Death, Hospitalization)
  Sender: FDA-Public Use
  Company Number: A0854620A

PATIENT
  Age: 75 Year
  Sex: Female

DRUGS (5)
  1. ZOFRAN [Suspect]
     Indication: NAUSEA
     Dosage: 8MG THREE TIMES PER DAY
     Route: 048
     Dates: start: 20091223
  2. LOVENOX [Concomitant]
  3. OXYCODONE [Concomitant]
  4. PRILOSEC [Concomitant]
  5. CARDIZEM [Concomitant]

REACTIONS (1)
  - PANCREATIC CARCINOMA [None]
